FAERS Safety Report 19841192 (Version 3)
Quarter: 2022Q1

REPORT INFORMATION
  Report Type: Spontaneous
  Country: US (occurrence: US)
  Receive Date: 20210916
  Receipt Date: 20220117
  Transmission Date: 20220423
  Serious: Yes (Other)
  Sender: FDA-Public Use
  Company Number: US-PFIZER INC-202101136337

PATIENT
  Age: 85 Year
  Sex: Female
  Weight: 63.05 kg

DRUGS (5)
  1. IBRANCE [Suspect]
     Active Substance: PALBOCICLIB
     Indication: Breast cancer stage IV
     Dosage: 100 MG, CYCLIC (ONCE A DAY FOR 3 WEEKS THEN OFF 1 WEEK)
     Route: 048
     Dates: start: 202102
  2. IBRANCE [Suspect]
     Active Substance: PALBOCICLIB
     Dosage: UNK
  3. FULVESTRANT [Concomitant]
     Active Substance: FULVESTRANT
     Indication: Breast cancer female
     Dosage: UNK, MONTHLY (INJECTION ONCE A MONTH)
  4. POTASSIUM [Concomitant]
     Active Substance: POTASSIUM
     Indication: Supplementation therapy
     Dosage: 20 MEQ 1X/DAY (ER)
  5. HYDROCHLOROTHIAZIDE [Concomitant]
     Active Substance: HYDROCHLOROTHIAZIDE
     Indication: Hypertension
     Dosage: 25 MG, 1X/DAY

REACTIONS (18)
  - Haemorrhage [Recovered/Resolved]
  - Oral herpes [Unknown]
  - Stomatitis [Unknown]
  - Hypotension [Recovering/Resolving]
  - Weight decreased [Unknown]
  - Full blood count abnormal [Unknown]
  - Dizziness postural [Not Recovered/Not Resolved]
  - White blood cell count decreased [Not Recovered/Not Resolved]
  - Red blood cell count decreased [Not Recovered/Not Resolved]
  - Inappropriate schedule of product administration [Unknown]
  - Product dose omission issue [Not Recovered/Not Resolved]
  - Stomatitis [Not Recovered/Not Resolved]
  - Cardiac murmur [Unknown]
  - Myalgia [Unknown]
  - Pain [Unknown]
  - Tissue injury [Unknown]
  - Mastication disorder [Unknown]
  - Oral pain [Not Recovered/Not Resolved]

NARRATIVE: CASE EVENT DATE: 20210101
